FAERS Safety Report 5803969-3 (Version None)
Quarter: 2008Q3

REPORT INFORMATION
  Report Type: 
  Country: None (occurrence: None)
  Receive Date: 20080703
  Receipt Date: 20080623
  Transmission Date: 20090109
  Serious: No
  Sender: FDA-Public Use
  Company Number: DSU-2008-00955

PATIENT
  Sex: Female

DRUGS (1)
  1. WELCHOL (COLESEVELAM HYDRHOCHLORIDE) (625 MILLIGRAM, TABLET) (COLESEVE [Suspect]
     Indication: DRUG USE FOR UNKNOWN INDICATION
     Dosage: UNKNOWN, PER ORAL
     Route: 048

REACTIONS (2)
  - DYSPHAGIA [None]
  - PHARMACEUTICAL PRODUCT COMPLAINT [None]
